FAERS Safety Report 5024773-2 (Version None)
Quarter: 2006Q2

REPORT INFORMATION
  Report Type: 
  Country: None (occurrence: None)
  Receive Date: 20060613
  Receipt Date: 20060601
  Transmission Date: 20061013
  Serious: Yes (Hospitalization)
  Sender: FDA-Public Use
  Company Number: 2006UW11453

PATIENT
  Age: 42 Year
  Sex: Male

DRUGS (7)
  1. SEROQUEL [Suspect]
     Route: 048
  2. LEXAPRO [Interacting]
     Indication: DEPRESSION
     Route: 048
     Dates: start: 20050801, end: 20060202
  3. LEXAPRO [Interacting]
     Route: 048
     Dates: start: 20060203
  4. MARIJUANA [Interacting]
     Indication: MIGRAINE
  5. ZONEGRAN [Concomitant]
  6. ZONEGRAN [Concomitant]
  7. WELLBUTRIN XL [Concomitant]

REACTIONS (12)
  - ALANINE AMINOTRANSFERASE DECREASED [None]
  - ANXIETY [None]
  - BLOOD UREA NITROGEN/CREATININE RATIO DECREASED [None]
  - DEPRESSION [None]
  - DRUG INTERACTION [None]
  - FAMILY STRESS [None]
  - HOMICIDAL IDEATION [None]
  - INSOMNIA [None]
  - SUICIDAL BEHAVIOUR [None]
  - SUICIDAL IDEATION [None]
  - TEARFULNESS [None]
  - WEIGHT DECREASED [None]
